FAERS Safety Report 6862167-5 (Version None)
Quarter: 2010Q3

REPORT INFORMATION
  Report Type: 
  Country: None (occurrence: None)
  Receive Date: 20100721
  Receipt Date: 20100719
  Transmission Date: 20110219
  Serious: Yes (Hospitalization)
  Sender: FDA-Public Use
  Company Number: FR-SANOFI-AVENTIS-2010SA041800

PATIENT
  Age: 81 Year
  Sex: Male

DRUGS (2)
  1. RIFADIN [Suspect]
     Dosage: DOSE:6 UNIT(S)
     Route: 048
     Dates: start: 20100521, end: 20100525
  2. FUCIDINE CAP [Suspect]
     Dosage: DOSE:6 UNIT(S)
     Route: 048
     Dates: start: 20100521, end: 20100525

REACTIONS (2)
  - CHOLESTASIS [None]
  - JAUNDICE [None]
